FAERS Safety Report 17743684 (Version 1)
Quarter: 2020Q2

REPORT INFORMATION
  Report Type: Report from Study
  Country: FR (occurrence: FR)
  Receive Date: 20200505
  Receipt Date: 20200505
  Transmission Date: 20200714
  Serious: Yes (Death, Hospitalization)
  Sender: FDA-Public Use
  Company Number: FR-ROCHE-2587156

PATIENT

DRUGS (8)
  1. CLAVENTIN [CLAVULANATE POTASSIUM;TICARCILLIN DISODIUM] [Suspect]
     Active Substance: CLAVULANATE POTASSIUM\TICARCILLIN DISODIUM
     Indication: PROPHYLAXIS
     Route: 065
  2. PROGRAF [Suspect]
     Active Substance: TACROLIMUS
     Indication: IMMUNOSUPPRESSION
     Route: 065
  3. ZOVIRAX [Suspect]
     Active Substance: ACYCLOVIR
     Indication: PROPHYLAXIS
     Route: 065
  4. METHYLPREDNISOLONE. [Suspect]
     Active Substance: METHYLPREDNISOLONE
     Indication: TRANSPLANT REJECTION
     Route: 065
  5. MYCOPHENOLATE MOFETIL. [Suspect]
     Active Substance: MYCOPHENOLATE MOFETIL
     Indication: IMMUNOSUPPRESSION
     Route: 065
  6. SIMULECT [Suspect]
     Active Substance: BASILIXIMAB
     Indication: POLYURIA
     Route: 065
  7. SULFAMETHOXAZOLE/TRIMETHOPRIM [Suspect]
     Active Substance: SULFAMETHOXAZOLE\TRIMETHOPRIM
     Indication: PROPHYLAXIS
     Route: 065
  8. TRIFLUCAN [Suspect]
     Active Substance: FLUCONAZOLE
     Indication: PROPHYLAXIS
     Route: 065

REACTIONS (15)
  - Bacteraemia [Unknown]
  - Shock haemorrhagic [Fatal]
  - Ascites [Unknown]
  - Cholangitis [Unknown]
  - Abdominal abscess [Unknown]
  - Device related sepsis [Unknown]
  - Colitis [Unknown]
  - Pneumonia viral [Unknown]
  - Sepsis [Unknown]
  - Urinary tract infection [Unknown]
  - Septic shock [Fatal]
  - Peritonitis [Unknown]
  - Necrosis [Unknown]
  - Cerebral aspergillosis [Fatal]
  - Multiple organ dysfunction syndrome [Fatal]
